FAERS Safety Report 5954003-6 (Version None)
Quarter: 2008Q4

REPORT INFORMATION
  Report Type: 
  Country: None (occurrence: None)
  Receive Date: 20081114
  Receipt Date: 20081031
  Transmission Date: 20090506
  Serious: Yes (Other)
  Sender: FDA-Public Use
  Company Number: DE-GENENTECH-271149

PATIENT
  Age: 55 Year
  Sex: Female

DRUGS (2)
  1. AVASTIN [Suspect]
     Indication: BREAST CANCER METASTATIC
     Dosage: 10 MG, 2/WEEK
     Route: 065
     Dates: start: 20080201
  2. XELODA [Suspect]
     Indication: BREAST CANCER METASTATIC
     Dosage: UNK
     Route: 065
     Dates: start: 20080201

REACTIONS (2)
  - LARYNGITIS [None]
  - LEUKOPLAKIA [None]
